FAERS Safety Report 14121743 (Version 1)
Quarter: 2017Q4

REPORT INFORMATION
  Report Type: Spontaneous
  Country: US (occurrence: US)
  Receive Date: 20171024
  Receipt Date: 20171024
  Transmission Date: 20180321
  Serious: Yes (Other)
  Sender: FDA-Public Use
  Company Number: US-GILEAD-2017-0300318

PATIENT
  Sex: Male
  Weight: 79.37 kg

DRUGS (12)
  1. HARVONI [Suspect]
     Active Substance: LEDIPASVIR\SOFOSBUVIR
     Indication: CHRONIC HEPATITIS C
     Dosage: UNK
     Route: 065
     Dates: start: 20160816, end: 20161010
  2. INSULIN REGULAR                    /01223201/ [Concomitant]
     Active Substance: INSULIN BEEF
  3. LITHIUM CARBONATE. [Concomitant]
     Active Substance: LITHIUM CARBONATE
  4. EPZICOM [Concomitant]
     Active Substance: ABACAVIR SULFATE\LAMIVUDINE
  5. GLIPIZIDE. [Concomitant]
     Active Substance: GLIPIZIDE
  6. RANITIDINE. [Concomitant]
     Active Substance: RANITIDINE
  7. ASPIRIN                            /00002701/ [Concomitant]
     Active Substance: ASPIRIN
  8. LISINOPRIL. [Concomitant]
     Active Substance: LISINOPRIL
  9. RITONAVIR. [Concomitant]
     Active Substance: RITONAVIR
  10. RALTEGRAVIR. [Concomitant]
     Active Substance: RALTEGRAVIR
  11. DARUNAVIR [Concomitant]
     Active Substance: DARUNAVIR
  12. RISPERIDONE. [Concomitant]
     Active Substance: RISPERIDONE

REACTIONS (3)
  - Treatment failure [Unknown]
  - Hepatitis C [Unknown]
  - Drug ineffective [Unknown]
